FAERS Safety Report 12627040 (Version 2)
Quarter: 2016Q3

REPORT INFORMATION
  Report Type: Spontaneous
  Country: FR (occurrence: FR)
  Receive Date: 20160805
  Receipt Date: 20160928
  Transmission Date: 20161109
  Serious: Yes (Hospitalization, Other)
  Sender: FDA-Public Use
  Company Number: FR-ASTRAZENECA-2016SE78964

PATIENT
  Age: 54 Year
  Sex: Female

DRUGS (1)
  1. IRESSA [Suspect]
     Active Substance: GEFITINIB
     Indication: LUNG NEOPLASM MALIGNANT
     Route: 048
     Dates: start: 201507, end: 2016

REACTIONS (4)
  - Cystitis [Recovered/Resolved]
  - Pulmonary oedema [Unknown]
  - Malignant neoplasm progression [Unknown]
  - Stress [Unknown]

NARRATIVE: CASE EVENT DATE: 2016
